FAERS Safety Report 7297192-6 (Version None)
Quarter: 2011Q1

REPORT INFORMATION
  Report Type: 
  Country: None (occurrence: None)
  Receive Date: 20110216
  Receipt Date: 20110214
  Transmission Date: 20110831
  Serious: No
  Sender: FDA-Public Use
  Company Number: US-PFIZER INC-2011032838

PATIENT
  Sex: Female

DRUGS (3)
  1. PREMARIN [Concomitant]
     Dosage: UNK
  2. ZOLOFT [Suspect]
     Indication: DEPRESSION
     Dosage: 25 MG, DAILY
     Route: 048
  3. SYNTHROID [Concomitant]
     Dosage: UNK

REACTIONS (1)
  - TINNITUS [None]
